FAERS Safety Report 5161214-9 (Version None)
Quarter: 2006Q4

REPORT INFORMATION
  Report Type: 
  Country: None (occurrence: None)
  Receive Date: 20061130
  Receipt Date: 20060822
  Transmission Date: 20070319
  Serious: Yes (Other)
  Sender: FDA-Public Use
  Company Number: US-BRISTOL-MYERS SQUIBB COMPANY-13484860

PATIENT
  Age: 61 Year
  Sex: Male
  Weight: 119 kg

DRUGS (9)
  1. ERBITUX [Suspect]
     Indication: OROPHARYNGEAL CANCER STAGE UNSPECIFIED
     Route: 042
     Dates: start: 20060822, end: 20060822
  2. BENADRYL [Concomitant]
     Indication: PREMEDICATION
     Route: 042
  3. POTASSIUM ACETATE [Concomitant]
  4. LASIX [Concomitant]
  5. ENALAPRIL MALEATE [Concomitant]
  6. COREG [Concomitant]
  7. AMIODARONE HCL [Concomitant]
  8. COUMADIN [Concomitant]
  9. ZOCOR [Concomitant]

REACTIONS (1)
  - CHILLS [None]
